FAERS Safety Report 6678100-5 (Version None)
Quarter: 2010Q2

REPORT INFORMATION
  Report Type: 
  Country: None (occurrence: None)
  Receive Date: 20100412
  Receipt Date: 20100405
  Transmission Date: 20101027
  Serious: Yes (Death, Disabling, Other)
  Sender: FDA-Public Use
  Company Number: JP-ROCHE-669392

PATIENT
  Sex: Female
  Weight: 69 kg

DRUGS (20)
  1. ACTEMRA [Suspect]
     Indication: RHEUMATOID ARTHRITIS
     Route: 041
     Dates: start: 20090416, end: 20090916
  2. ACTEMRA [Suspect]
     Route: 041
     Dates: start: 20090521, end: 20090521
  3. ACTEMRA [Suspect]
     Route: 041
     Dates: start: 20090618, end: 20090618
  4. ACTEMRA [Suspect]
     Route: 041
     Dates: start: 20090722, end: 20090722
  5. ACTEMRA [Suspect]
     Route: 041
     Dates: start: 20090819, end: 20090819
  6. ACTEMRA [Suspect]
     Dosage: ACTION TAKEN: DISCONTINUED
     Route: 041
     Dates: start: 20090916, end: 20090916
  7. OMEPRAL [Concomitant]
     Dosage: DOSE FORM: ENTERIC COATING DRUG
     Route: 048
  8. LIPITOR [Concomitant]
     Dosage: DRUG: LIPITOR(ATORVASTATIN CALCIUM)
     Route: 048
  9. MOBIC [Concomitant]
     Route: 048
  10. ONEALFA [Concomitant]
     Route: 048
  11. FUROSEMID [Concomitant]
     Dosage: DRUG: FUROSEMIDE(FUROSEMIDE)
     Route: 048
  12. DIOVAN [Concomitant]
     Route: 048
  13. NORVASC [Concomitant]
     Dosage: DRUG: NORVASC(AMLODIPINE BESILATE)
     Route: 048
  14. DOXAZOSIN MESYLATE [Concomitant]
     Dosage: DRUG: CARDENALIN(DOXAZOSIN MESILATE)
     Route: 048
  15. ALENDRONATE SODIUM [Concomitant]
     Dosage: DRUG: FOSAMAC 35MG(ALENDRONATE SODIUM HYDRATE)
     Route: 048
  16. AZULFIDINE [Concomitant]
     Route: 048
  17. PREDONINE [Concomitant]
     Dates: end: 20090520
  18. PREDONINE [Concomitant]
     Dates: start: 20090521, end: 20090617
  19. PREDONINE [Concomitant]
     Dates: start: 20090618, end: 20090916
  20. PREDONINE [Concomitant]
     Dates: start: 20090917

REACTIONS (3)
  - INTERSTITIAL LUNG DISEASE [None]
  - PNEUMONIA [None]
  - PULMONARY HYPERTENSION [None]
